FAERS Safety Report 5919210-7 (Version None)
Quarter: 2008Q4

REPORT INFORMATION
  Report Type: 
  Country: None (occurrence: None)
  Receive Date: 20081014
  Receipt Date: 20081014
  Transmission Date: 20090506
  Serious: No
  Sender: FDA-Public Use
  Company Number: None

PATIENT
  Age: 43 Year
  Sex: Female
  Weight: 70.3075 kg

DRUGS (1)
  1. CHANTIX [Suspect]
     Indication: SMOKING CESSATION THERAPY
     Dosage: 1MG TWICE DAILY
     Dates: start: 20080827, end: 20081009

REACTIONS (3)
  - CONDITION AGGRAVATED [None]
  - MOOD SWINGS [None]
  - MOVEMENT DISORDER [None]
